FAERS Safety Report 4846877-7 (Version None)
Quarter: 2005Q4

REPORT INFORMATION
  Report Type: 
  Country: None (occurrence: None)
  Receive Date: 20051201
  Receipt Date: 20051115
  Transmission Date: 20060501
  Serious: Yes (Other)
  Sender: FDA-Public Use
  Company Number: US158941

PATIENT

DRUGS (2)
  1. ETANERCEPT (ETANERCEPT) [Suspect]
     Indication: JUVENILE ARTHRITIS
  2. METHOTREXATE [Concomitant]

REACTIONS (1)
  - ECZEMA [None]
